FAERS Safety Report 17151003 (Version 1)
Quarter: 2019Q4

REPORT INFORMATION
  Report Type: Spontaneous
  Country: US (occurrence: US)
  Receive Date: 20191212
  Receipt Date: 20191212
  Transmission Date: 20200122
  Serious: Yes (Hospitalization)
  Sender: FDA-Public Use
  Company Number: None

PATIENT
  Age: 83 Year
  Sex: Male
  Weight: 124.6 kg

DRUGS (2)
  1. RIVAROXABAN [Suspect]
     Active Substance: RIVAROXABAN
     Indication: ATRIAL FIBRILLATION
     Dates: start: 20140109
  2. METOPROLOL 50MG QID [Concomitant]

REACTIONS (11)
  - Presyncope [None]
  - Hiatus hernia [None]
  - Clostridium difficile infection [None]
  - Gastrointestinal haemorrhage [None]
  - Culture stool positive [None]
  - Vomiting [None]
  - Diarrhoea [None]
  - Nausea [None]
  - Dehydration [None]
  - Oesophagitis [None]
  - Ulcer [None]

NARRATIVE: CASE EVENT DATE: 20150420
